FAERS Safety Report 8791378 (Version 1)
Quarter: 2012Q4

REPORT INFORMATION
  Report Type: Spontaneous
  Country: US (occurrence: None)
  Receive Date: 20120914
  Receipt Date: 20120914
  Transmission Date: 20130627
  Serious: Yes (Hospitalization)
  Sender: FDA-Public Use
  Company Number: None

PATIENT
  Sex: Female
  Weight: 60.9 kg

DRUGS (12)
  1. CARBOPLATIN [Suspect]
  2. PACLITAXEL (TAXOL) [Suspect]
  3. AMBIEN [Concomitant]
  4. JOINT HEALTH COMPLEX [Concomitant]
  5. LISINOPRIL/HYDROCHLOROTHIAZIDE [Concomitant]
  6. MULTIVITAMIN [Concomitant]
  7. NEULASTA [Concomitant]
  8. NITROFURANTOIN [Concomitant]
  9. OXYCODONE/ACETAMINOPHEN [Concomitant]
  10. PRILOSEC [Concomitant]
  11. PROMETHAZINE [Concomitant]
  12. TYLENOL [Concomitant]

REACTIONS (7)
  - Blood creatinine increased [None]
  - Blood sodium decreased [None]
  - Tachycardia [None]
  - Myalgia [None]
  - Dyspnoea [None]
  - Dehydration [None]
  - Renal failure acute [None]
